FAERS Safety Report 20647657 (Version 1)
Quarter: 2022Q1

REPORT INFORMATION
  Report Type: Spontaneous
  Country: NP (occurrence: NP)
  Receive Date: 20220329
  Receipt Date: 20220329
  Transmission Date: 20220423
  Serious: Yes (Other)
  Sender: FDA-Public Use
  Company Number: NP-Indoco-000286

PATIENT
  Sex: Male
  Weight: 3.5 kg

DRUGS (1)
  1. OLANZAPINE [Suspect]
     Active Substance: OLANZAPINE
     Route: 064

REACTIONS (4)
  - Talipes [Unknown]
  - Foetal exposure during pregnancy [Unknown]
  - Sedation [Unknown]
  - Exposure via breast milk [Unknown]
